FAERS Safety Report 7759845-2 (Version None)
Quarter: 2011Q3

REPORT INFORMATION
  Report Type: 
  Country: None (occurrence: None)
  Receive Date: 20110919
  Receipt Date: 20110908
  Transmission Date: 20111222
  Serious: Yes (Hospitalization)
  Sender: FDA-Public Use
  Company Number: CA-JNJFOC-20110712017

PATIENT
  Sex: Male
  Weight: 81.9 kg

DRUGS (2)
  1. REMICADE [Suspect]
     Indication: CROHN'S DISEASE
     Dosage: ONCE EVERY 7 TO 8 WEEKS; 50TH INFUSION
     Route: 042
     Dates: start: 20110520
  2. REMICADE [Suspect]
     Dosage: ONCE EVERY 7 TO 8 WEEKS
     Route: 042
     Dates: start: 20030918

REACTIONS (1)
  - ABDOMINAL HERNIA [None]
